FAERS Safety Report 17053502 (Version 1)
Quarter: 2019Q4

REPORT INFORMATION
  Report Type: Spontaneous
  Country: US (occurrence: US)
  Receive Date: 20191120
  Receipt Date: 20191120
  Transmission Date: 20200122
  Serious: No
  Sender: FDA-Public Use
  Company Number: None

PATIENT
  Age: 59 Year
  Sex: Male
  Weight: 90.4 kg

DRUGS (2)
  1. HEPARIN [Suspect]
     Active Substance: HEPARIN SODIUM
     Indication: ACUTE MYOCARDIAL INFARCTION
     Dates: start: 20191111, end: 20191111
  2. HEPARIN [Suspect]
     Active Substance: HEPARIN SODIUM
     Indication: ACUTE MYOCARDIAL INFARCTION
     Dates: start: 20191111, end: 20191111

REACTIONS (4)
  - Coagulation time abnormal [None]
  - Vascular stent thrombosis [None]
  - Wrong product administered [None]
  - Product use issue [None]

NARRATIVE: CASE EVENT DATE: 20191111
